FAERS Safety Report 15025382 (Version 1)
Quarter: 2018Q3

REPORT INFORMATION
  Report Type: Spontaneous
  Country: LV (occurrence: LV)
  Receive Date: 20180618
  Receipt Date: 20180618
  Transmission Date: 20181010
  Serious: Yes (Death)
  Sender: FDA-Public Use
  Company Number: LV-FRESENIUS KABI-FK201806860

PATIENT
  Age: 81 Year
  Sex: Male

DRUGS (13)
  1. PARACETAMOL [Concomitant]
     Active Substance: ACETAMINOPHEN
  2. DEXAMETHASONE. [Concomitant]
     Active Substance: DEXAMETHASONE
  3. QUETIAPINE. [Concomitant]
     Active Substance: QUETIAPINE
  4. SODIUM CHLORIDE (MANUFACTURER UNKNOWN) [Suspect]
     Active Substance: SODIUM CHLORIDE
     Indication: DETOXIFICATION
     Dosage: UNKNOWN
     Route: 042
     Dates: start: 201610
  5. OMEPRAZOLE. [Concomitant]
     Active Substance: OMEPRAZOLE
  6. FURAMAG [Concomitant]
  7. FENTANILE DRESSINGS [Concomitant]
     Dosage: TITRATED TO 125  MCG/HOUR
     Dates: start: 201709
  8. DICLOFENAC [Concomitant]
     Active Substance: DICLOFENAC
     Route: 030
  9. TRAMADOL. [Concomitant]
     Active Substance: TRAMADOL
  10. FENTANILE DRESSINGS [Concomitant]
     Dosage: 25?50 MCG/HOUR
     Dates: start: 201610
  11. MANNITOL. [Concomitant]
     Active Substance: MANNITOL
     Route: 042
  12. FINLEPSINI [Suspect]
     Active Substance: CARBAMAZEPINE
     Dates: start: 201705
  13. GLUCOSE 5% (MANUFACTURER UNKNOWN) [Suspect]
     Active Substance: DEXTROSE
     Indication: DETOXIFICATION
     Dosage: UNKNOWN
     Route: 042
     Dates: start: 201610

REACTIONS (10)
  - Abdominal pain lower [None]
  - Off label use [Unknown]
  - Vomiting [None]
  - Altered state of consciousness [None]
  - Somnolence [None]
  - Seizure [None]
  - Bedridden [None]
  - Urinary retention [None]
  - Condition aggravated [Fatal]
  - Metastases to central nervous system [None]

NARRATIVE: CASE EVENT DATE: 201610
